FAERS Safety Report 22235371 (Version 3)
Quarter: 2023Q2

REPORT INFORMATION
  Report Type: Spontaneous
  Country: DE (occurrence: DE)
  Receive Date: 20230420
  Receipt Date: 20230621
  Transmission Date: 20230721
  Serious: Yes (Other)
  Sender: FDA-Public Use
  Company Number: DE-JNJFOC-20230433393

PATIENT
  Age: 34 Year
  Sex: Male
  Weight: 98 kg

DRUGS (3)
  1. STELARA [Suspect]
     Active Substance: USTEKINUMAB
     Indication: Colitis ulcerative
     Dosage: LAST DOSE 18-01-2023 BEFORE INCIDENT THEN 01-03-2023 AND 12-04-2023
     Route: 058
     Dates: start: 200112
  2. AMINOSALICYLIC ACID [Concomitant]
     Active Substance: AMINOSALICYLIC ACID
     Dates: start: 2021
  3. FERROUS GLYCINE SULFATE [Concomitant]
     Active Substance: FERROUS GLYCINE SULFATE
     Dates: start: 202212

REACTIONS (3)
  - Polyserositis [Recovered/Resolved]
  - Pericardial effusion [Unknown]
  - Helicobacter infection [Unknown]

NARRATIVE: CASE EVENT DATE: 20230201
